FAERS Safety Report 14227890 (Version 6)
Quarter: 2019Q3

REPORT INFORMATION
  Report Type: Spontaneous
  Country: TR (occurrence: TR)
  Receive Date: 20171127
  Receipt Date: 20190722
  Transmission Date: 20191004
  Serious: Yes (Life-Threatening, Hospitalization, Disabling, Other)
  Sender: FDA-Public Use
  Company Number: TR-BAYER-2017-197463

PATIENT
  Age: 33 Year
  Sex: Female
  Weight: 57 kg

DRUGS (4)
  1. YASMIN [Suspect]
     Active Substance: DROSPIRENONE\ETHINYL ESTRADIOL
     Indication: ENDOMETRIOSIS
     Dosage: UNK, QD
     Route: 048
     Dates: start: 20160805, end: 20160912
  2. METHYLPREDNISOLONE. [Concomitant]
     Active Substance: METHYLPREDNISOLONE
     Dosage: 64 MG, QD
     Route: 048
     Dates: start: 2017
  3. YASMIN [Suspect]
     Active Substance: DROSPIRENONE\ETHINYL ESTRADIOL
     Indication: ENDOMETRIOSIS
     Dosage: UNK
     Dates: start: 2005, end: 2005
  4. YASMIN [Suspect]
     Active Substance: DROSPIRENONE\ETHINYL ESTRADIOL
     Indication: ENDOMETRIOSIS
     Dosage: UNK
     Route: 048
     Dates: start: 20160805, end: 20160912

REACTIONS (19)
  - Immune system disorder [Not Recovered/Not Resolved]
  - Off label use [None]
  - Cerebrovascular accident [None]
  - Brain injury [Not Recovered/Not Resolved]
  - Arthralgia [Recovered/Resolved]
  - Cerebrovascular accident [Not Recovered/Not Resolved]
  - Suicidal ideation [Not Recovered/Not Resolved]
  - Family stress [None]
  - Therapeutic response unexpected [None]
  - Central nervous system vasculitis [Not Recovered/Not Resolved]
  - Product use in unapproved indication [None]
  - Product use in unapproved indication [None]
  - Endometriosis [None]
  - Muscle contractions involuntary [Not Recovered/Not Resolved]
  - Off label use [None]
  - Rheumatic disorder [Recovered/Resolved]
  - General physical health deterioration [Not Recovered/Not Resolved]
  - Hemiplegia [Not Recovered/Not Resolved]
  - Hemiplegia [Not Recovered/Not Resolved]

NARRATIVE: CASE EVENT DATE: 2005
